FAERS Safety Report 25567181 (Version 2)
Quarter: 2025Q3

REPORT INFORMATION
  Report Type: Report from Study
  Country: US (occurrence: US)
  Receive Date: 20250716
  Receipt Date: 20250814
  Transmission Date: 20251021
  Serious: Yes (Other)
  Sender: OTSUKA
  Company Number: US-MMM-Otsuka-AG5MJ7Q4

PATIENT
  Age: 46 Year
  Sex: Male

DRUGS (1)
  1. TOLVAPTAN [Suspect]
     Active Substance: TOLVAPTAN
     Indication: Congenital cystic kidney disease
     Route: 065
     Dates: start: 20240226

REACTIONS (2)
  - Accident [Unknown]
  - Renal cyst ruptured [Unknown]

NARRATIVE: CASE EVENT DATE: 20250703
